FAERS Safety Report 24373254 (Version 1)
Quarter: 2024Q3

REPORT INFORMATION
  Report Type: Report from Study
  Country: CA (occurrence: CA)
  Receive Date: 20240927
  Receipt Date: 20240927
  Transmission Date: 20241017
  Serious: Yes (Hospitalization, Other)
  Sender: HLS THERAPEUTICS
  Company Number: CA-HLS-202402246

PATIENT
  Age: 73 Year
  Sex: Male

DRUGS (1)
  1. CLOZARIL [Suspect]
     Active Substance: CLOZAPINE
     Indication: Product used for unknown indication
     Route: 048
     Dates: start: 19970805

REACTIONS (3)
  - Neutropenia [Not Recovered/Not Resolved]
  - Lung neoplasm malignant [Unknown]
  - Leukopenia [Unknown]

NARRATIVE: CASE EVENT DATE: 20240916
